FAERS Safety Report 7183037-1 (Version None)
Quarter: 2010Q4

REPORT INFORMATION
  Report Type: 
  Country: None (occurrence: None)
  Receive Date: 20101222
  Receipt Date: 20101213
  Transmission Date: 20110411
  Serious: Yes (Death, Hospitalization)
  Sender: FDA-Public Use
  Company Number: US-JNJFOC-20101205041

PATIENT
  Sex: Male

DRUGS (2)
  1. CHILDREN'S TYLENOL SUSPENSION [Suspect]
     Indication: PAIN
     Route: 048
  2. CHILDREN'S TYLENOL SUSPENSION [Suspect]
     Indication: MALAISE
     Route: 048

REACTIONS (2)
  - SEPTIC SHOCK [None]
  - TRANSMISSION OF AN INFECTIOUS AGENT VIA A MEDICINAL PRODUCT [None]
